FAERS Safety Report 14149779 (Version 3)
Quarter: 2018Q1

REPORT INFORMATION
  Report Type: Spontaneous
  Country: TW (occurrence: TW)
  Receive Date: 20171101
  Receipt Date: 20180323
  Transmission Date: 20180508
  Serious: Yes (Other)
  Sender: FDA-Public Use
  Company Number: TW-PFIZER INC-2017439041

PATIENT
  Age: 45 Year
  Sex: Male

DRUGS (23)
  1. SOLU-MEDROL [Suspect]
     Active Substance: METHYLPREDNISOLONE SODIUM SUCCINATE
     Dosage: 250 MG, UNK (SECOND DOSE)
  2. PROTOPIC [Concomitant]
     Active Substance: TACROLIMUS
     Indication: IMMUNOSUPPRESSANT DRUG THERAPY
     Dosage: UNK (MAINTENANCE TREATMENT)
     Route: 061
  3. CLOBETASOL PROPIONATE. [Concomitant]
     Active Substance: CLOBETASOL PROPIONATE
     Indication: IMMUNOSUPPRESSANT DRUG THERAPY
     Dosage: UNK, 2X/DAY
     Route: 061
  4. HERBESSER [Concomitant]
     Active Substance: DILTIAZEM HYDROCHLORIDE
     Dosage: UNK
  5. TACROLIMUS. [Suspect]
     Active Substance: TACROLIMUS
     Dosage: 8-10 NG/ML
  6. PREDNISONE. [Suspect]
     Active Substance: PREDNISONE
     Indication: IMMUNOSUPPRESSANT DRUG THERAPY
     Dosage: UNK
  7. PREDNISONE. [Suspect]
     Active Substance: PREDNISONE
     Dosage: 10 MG, DAILY (MAINTENANCE TREATMENT)
  8. CEFTAZIDIME. [Concomitant]
     Active Substance: CEFTAZIDIME
     Indication: ANTIBIOTIC THERAPY
     Dosage: UNK (POSTOPERATIVELY)
  9. MYCOPHENOLATE MOFETIL. [Suspect]
     Active Substance: MYCOPHENOLATE MOFETIL
     Indication: IMMUNOSUPPRESSANT DRUG THERAPY
     Dosage: 2 G, DAILY (MAINTENANCE TREATMENT)
  10. GANCICLOVIR. [Concomitant]
     Active Substance: GANCICLOVIR
     Indication: ANTIVIRAL PROPHYLAXIS
     Dosage: 10 MG/KG, 1X/DAY
     Route: 042
  11. SOLU-MEDROL [Suspect]
     Active Substance: METHYLPREDNISOLONE SODIUM SUCCINATE
     Indication: IMMUNOSUPPRESSANT DRUG THERAPY
     Dosage: 500 MG, UNK (ON THE DAY OF SURGERY, BEFORE ANESTHESIA INDUCTION)
  12. PROGRAF [Concomitant]
     Active Substance: TACROLIMUS\TACROLIMUS ANHYDROUS
     Indication: IMMUNOSUPPRESSANT DRUG THERAPY
     Dosage: UNK (ON DAY 1)
  13. PREDNISOLONE. [Concomitant]
     Active Substance: PREDNISOLONE
     Dosage: 10 MG, DAILY (POSTOPERATIVELY)
  14. SOLU-MEDROL [Suspect]
     Active Substance: METHYLPREDNISOLONE SODIUM SUCCINATE
     Dosage: 125 MG, UNK (POST OPERATION DAY 1)
  15. PROTOPIC [Concomitant]
     Active Substance: TACROLIMUS
     Dosage: UNK
     Route: 061
  16. NYSTATIN. [Concomitant]
     Active Substance: NYSTATIN
     Indication: ANTIFUNGAL PROPHYLAXIS
     Dosage: UNK (DROPS)
     Route: 048
  17. VALGANCICLOVIR. [Concomitant]
     Active Substance: VALGANCICLOVIR
     Indication: ANTIVIRAL PROPHYLAXIS
     Dosage: 900 MG, DAILY
     Route: 048
  18. ACETYLSALICYLIC ACID [Concomitant]
     Active Substance: ASPIRIN
     Indication: THROMBOSIS PROPHYLAXIS
     Dosage: UNK
  19. TEICOPLANIN [Concomitant]
     Active Substance: TEICOPLANIN
     Indication: ANTIBIOTIC THERAPY
     Dosage: UNK (POSTOPERATIVELY)
  20. MYCOPHENOLATE MOFETIL. [Suspect]
     Active Substance: MYCOPHENOLATE MOFETIL
     Dosage: 1 G, DAILY
  21. ANTI-THYMOCYTE GLOBULIN [Concomitant]
     Active Substance: THYMOCYTE IMMUNE GLOBULIN NOS
     Indication: IMMUNOSUPPRESSANT DRUG THERAPY
     Dosage: 1.25 MG/KG, DAILY (INTRAOPERATIVELY)
  22. TACROLIMUS. [Suspect]
     Active Substance: TACROLIMUS
     Indication: IMMUNOSUPPRESSANT DRUG THERAPY
     Dosage: UNK
  23. TRIMETHOPRIM SULFAMETHOXAZOLE [Concomitant]
     Active Substance: SULFAMETHOXAZOLE\TRIMETHOPRIM
     Indication: ANTIFUNGAL PROPHYLAXIS
     Dosage: TRIMETHOPRIM 400 MG/SULFAMETHOXAZOLE 80 MG

REACTIONS (4)
  - Leukopenia [Recovered/Resolved]
  - Overdose [Recovered/Resolved]
  - Folliculitis [Recovered/Resolved]
  - Fungal infection [Recovered/Resolved]
